FAERS Safety Report 6167013-3 (Version None)
Quarter: 2009Q2

REPORT INFORMATION
  Report Type: 
  Country: None (occurrence: None)
  Receive Date: 20090424
  Receipt Date: 20090414
  Transmission Date: 20091009
  Serious: Yes (Other)
  Sender: FDA-Public Use
  Company Number: CA-PFIZER INC-2009198489

PATIENT

DRUGS (2)
  1. LYRICA [Suspect]
     Indication: NEURALGIA
     Dosage: 25-150 MG, 2X/DAY
     Route: 048
     Dates: start: 20090121, end: 20090310
  2. KADIAN ^KNOLL^ [Concomitant]
     Indication: PAIN
     Dosage: 10-20 MG
     Route: 048
     Dates: start: 20090121

REACTIONS (1)
  - TENDONITIS [None]
